FAERS Safety Report 24268788 (Version 1)
Quarter: 2024Q3

REPORT INFORMATION
  Report Type: Spontaneous
  Country: BA (occurrence: BA)
  Receive Date: 20240830
  Receipt Date: 20240830
  Transmission Date: 20241017
  Serious: Yes (Hospitalization, Other)
  Sender: SANDOZ
  Company Number: BA-MLMSERVICE-20240307-4873609-1

PATIENT
  Age: 38 Year
  Sex: Female

DRUGS (6)
  1. CYCLOPHOSPHAMIDE [Suspect]
     Active Substance: CYCLOPHOSPHAMIDE
     Indication: Hormone therapy
     Dosage: 600.000MG/M2
     Route: 065
     Dates: start: 202010, end: 202104
  2. DOCETAXEL [Suspect]
     Active Substance: DOCETAXEL\DOCETAXEL ANHYDROUS
     Indication: Neoadjuvant therapy
     Dosage: 75.000MG/M2
     Route: 065
     Dates: start: 202010, end: 202104
  3. DOXORUBICIN [Suspect]
     Active Substance: DOXORUBICIN
     Indication: Invasive ductal breast carcinoma
     Dosage: 60.000MG/M2
     Route: 065
     Dates: start: 202010, end: 202104
  4. TRASTUZUMAB [Suspect]
     Active Substance: TRASTUZUMAB
     Dosage: 6.000MG/KG TIW
     Route: 065
  5. TRASTUZUMAB [Suspect]
     Active Substance: TRASTUZUMAB
     Indication: Triple positive breast cancer
     Dosage: LOADING DOSE OF 8 MG/KG
     Route: 065
     Dates: start: 202010
  6. TAMOXIFEN [Concomitant]
     Active Substance: TAMOXIFEN
     Indication: Triple positive breast cancer
     Route: 065
     Dates: start: 202105

REACTIONS (2)
  - Cardiac failure [Recovering/Resolving]
  - Toxic cardiomyopathy [Recovering/Resolving]

NARRATIVE: CASE EVENT DATE: 20210701
